FAERS Safety Report 9876108 (Version 1)
Quarter: 2014Q1

REPORT INFORMATION
  Report Type: Other
  Country: US (occurrence: US)
  Receive Date: 20140206
  Receipt Date: 20140206
  Transmission Date: 20141002
  Serious: No
  Sender: FDA-Public Use
  Company Number: US-ACORDA-ACO_36817_2013

PATIENT
  Sex: Female
  Weight: 53.61 kg

DRUGS (3)
  1. AMPYRA [Suspect]
     Indication: HEMIPARESIS
     Dosage: 10 MG, BID
     Route: 048
     Dates: start: 201305
  2. AMPYRA [Suspect]
     Indication: ASTHENIA
  3. TYSABRI [Concomitant]
     Indication: PRODUCT USED FOR UNKNOWN INDICATION
     Dosage: UNK
     Dates: start: 2008

REACTIONS (2)
  - Fatigue [Recovered/Resolved]
  - Drug dose omission [Unknown]
